FAERS Safety Report 24953945 (Version 1)
Quarter: 2025Q1

REPORT INFORMATION
  Report Type: Spontaneous
  Country: US (occurrence: US)
  Receive Date: 20250211
  Receipt Date: 20250211
  Transmission Date: 20250409
  Serious: No
  Sender: ALKEM
  Company Number: US-ALKEM LABORATORIES LIMITED-US-ALKEM-2024-12033

PATIENT
  Age: 75 Year
  Sex: Female

DRUGS (8)
  1. TRIAMCINOLONE ACETONIDE [Suspect]
     Active Substance: TRIAMCINOLONE ACETONIDE
     Indication: Erythema dyschromicum perstans
     Route: 061
  2. TRIAMCINOLONE ACETONIDE [Suspect]
     Active Substance: TRIAMCINOLONE ACETONIDE
     Indication: Pruritus
  3. BETAMETHASONE [Suspect]
     Active Substance: BETAMETHASONE
     Indication: Erythema dyschromicum perstans
     Route: 061
  4. BETAMETHASONE [Suspect]
     Active Substance: BETAMETHASONE
     Indication: Pruritus
  5. HYDROQUINONE [Suspect]
     Active Substance: HYDROQUINONE
     Indication: Erythema dyschromicum perstans
     Route: 065
  6. HYDROQUINONE [Suspect]
     Active Substance: HYDROQUINONE
     Indication: Pruritus
  7. OSIMERTINIB [Concomitant]
     Active Substance: OSIMERTINIB
     Indication: Non-small cell lung cancer stage III
     Route: 065
  8. SULFAMETHOXAZOLE\TRIMETHOPRIM [Concomitant]
     Active Substance: SULFAMETHOXAZOLE\TRIMETHOPRIM
     Indication: Product used for unknown indication
     Route: 065

REACTIONS (1)
  - Therapy partial responder [Unknown]
